FAERS Safety Report 14272804 (Version 1)
Quarter: 2017Q4

REPORT INFORMATION
  Report Type: Spontaneous
  Country: US (occurrence: None)
  Receive Date: 20171212
  Receipt Date: 20171212
  Transmission Date: 20180321
  Serious: Yes (Hospitalization)
  Sender: FDA-Public Use
  Company Number: None

PATIENT
  Age: 14 Year
  Sex: Female
  Weight: 55.4 kg

DRUGS (4)
  1. METHOTREXATE. [Suspect]
     Active Substance: METHOTREXATE
     Dates: end: 20171013
  2. MERCAPTOPURINE. [Suspect]
     Active Substance: MERCAPTOPURINE
     Dates: end: 20171107
  3. PREDNISONE. [Suspect]
     Active Substance: PREDNISONE
     Dates: end: 20171017
  4. VINCRISTINE SULFATE. [Suspect]
     Active Substance: VINCRISTINE SULFATE
     Dates: end: 20171013

REACTIONS (7)
  - Coagulopathy [None]
  - Vomiting [None]
  - Pancytopenia [None]
  - Fatigue [None]
  - Headache [None]
  - Blood pressure abnormal [None]
  - Streptococcus test positive [None]

NARRATIVE: CASE EVENT DATE: 20171108
